FAERS Safety Report 4718343-0 (Version None)
Quarter: 2005Q3

REPORT INFORMATION
  Report Type: 
  Country: None (occurrence: None)
  Receive Date: 20050718
  Receipt Date: 20041202
  Transmission Date: 20060218
  Serious: Yes (Other)
  Sender: FDA-Public Use
  Company Number: 240916

PATIENT
  Sex: Female

DRUGS (2)
  1. ACTIVELLA (NORESTHISTERONE ACETATE, ESTRADIOL HEMIHYDRATE) FILM-COATED [Suspect]
     Indication: MENOPAUSE
     Dosage: ORAL
     Route: 048
  2. PREMPRO [Concomitant]

REACTIONS (1)
  - BREAST CANCER IN SITU [None]
